FAERS Safety Report 9867229 (Version 1)
Quarter: 2014Q1

REPORT INFORMATION
  Report Type: Report from Study
  Country: TW (occurrence: TW)
  Receive Date: 20140204
  Receipt Date: 20140204
  Transmission Date: 20141002
  Serious: No
  Sender: FDA-Public Use
  Company Number: PHHY2014TW012705

PATIENT
  Age: 84 Year
  Sex: Male

DRUGS (67)
  1. AMN107 [Suspect]
     Dates: start: 20111216, end: 20111225
  2. AMN107 [Suspect]
     Dates: start: 20120109, end: 20120126
  3. AMN107 [Suspect]
     Dates: start: 20120127, end: 20120711
  4. AMN107 [Suspect]
     Dates: start: 20120712, end: 20120905
  5. AMN107 [Suspect]
     Dates: start: 20120906
  6. KCL [Concomitant]
     Indication: METABOLIC ALKALOSIS
     Dates: start: 20111230, end: 20120103
  7. ACETAMINOPHEN [Concomitant]
     Indication: PYREXIA
     Dates: start: 20111226, end: 20111226
  8. ACETYLSALICYLIC ACID [Concomitant]
     Indication: THROMBOSIS PROPHYLAXIS
     Dates: start: 20111226, end: 20111226
  9. ACETYLSALICYLIC ACID [Concomitant]
     Dates: start: 20120419
  10. ALLOPURINOL [Concomitant]
     Indication: HYPERURICAEMIA
     Dates: start: 20120906
  11. AMLODIPINE [Concomitant]
     Indication: HYPERTENSION
     Dates: start: 20111228, end: 20111228
  12. AMOXICILLIN [Concomitant]
     Indication: PNEUMONIA
     Dates: start: 20111226, end: 20120102
  13. AMOXICILLIN + CLAVULANIC ACID [Concomitant]
     Indication: INFLUENZA
     Dates: start: 20130404, end: 20130407
  14. ASPIRIN [Concomitant]
     Indication: THROMBOSIS PROPHYLAXIS
     Dates: start: 20120108, end: 20120419
  15. ATORVASTATIN [Concomitant]
     Indication: HYPERCHOLESTEROLAEMIA
     Dates: start: 20121129
  16. BROMHEXINE [Concomitant]
     Indication: PHARYNGITIS
     Dosage: UNK
     Dates: start: 20120316, end: 20120809
  17. BROMHEXINE [Concomitant]
     Indication: COUGH
     Dates: start: 20120622, end: 20120625
  18. BROMHEXINE [Concomitant]
     Indication: PRODUCTIVE COUGH
     Dates: start: 20120712, end: 20120809
  19. BROMHEXINE [Concomitant]
     Dates: start: 20130419, end: 20130502
  20. BENZBROMARONE [Concomitant]
     Indication: HYPERURICAEMIA
     Dates: start: 20111226, end: 20111226
  21. BENZONATATE [Concomitant]
     Indication: COUGH
     Dates: start: 20130419, end: 20130502
  22. BROWN MIXTURE                      /01682301/ [Concomitant]
     Indication: PHARYNGITIS
     Dates: start: 20120622, end: 20120625
  23. CEFTRIAXONE [Concomitant]
     Indication: PNEUMONIA
     Dates: start: 20111225, end: 20111226
  24. CEPHALEXIN [Concomitant]
     Indication: SKIN ULCER
     Dates: start: 20130806, end: 20130820
  25. CETIRIZINE [Concomitant]
     Indication: URTICARIA
     Dates: start: 20120712, end: 20121101
  26. CETIRIZINE [Concomitant]
     Dosage: UNK
     Dates: start: 20130918, end: 20131016
  27. CHLORHEXIDINE [Concomitant]
     Indication: DENTAL DISORDER PROPHYLAXIS
     Dates: start: 20120111, end: 20120117
  28. CLOBETASOL [Concomitant]
     Indication: ECZEMA
     Dates: start: 20120615, end: 20120706
  29. CLOBETASOL [Concomitant]
     Dosage: UNK
     Dates: start: 20121127, end: 20121225
  30. CLOPIDOGREL [Concomitant]
     Indication: MYOCARDIAL INFARCTION
     Dates: start: 20111226, end: 20111228
  31. CLOTRIMAZOLE [Concomitant]
     Indication: URTICARIA
     Dates: start: 20120111, end: 20120117
  32. DESLORATADINE [Concomitant]
     Indication: URTICARIA
     Dates: start: 20121101, end: 20130503
  33. DICLOFENAC POTASSIUM [Concomitant]
     Indication: PHARYNGITIS
     Dates: start: 20120622, end: 20120625
  34. DIFLUCORTOLONE [Concomitant]
     Indication: ECZEMA
     Dates: start: 20120615
  35. DOXAZOSIN [Concomitant]
     Indication: HYPERTENSION
     Dates: start: 20120419
  36. ENALAPRIL [Concomitant]
     Indication: HYPERTENSION
     Dates: start: 20111226
  37. FEXOFENADINE [Concomitant]
     Indication: URTICARIA
     Dates: start: 20120420, end: 20120713
  38. FEXOFENADINE [Concomitant]
     Dates: start: 20130820, end: 20130917
  39. FUROSEMIDE [Concomitant]
     Indication: PLEURAL EFFUSION
     Dates: start: 20111225
  40. FUSIDIC ACID [Concomitant]
     Indication: SKIN ULCER
     Dates: start: 20130806, end: 20130820
  41. ISOSORBIDE DINITRATE [Concomitant]
     Indication: MYOCARDIAL INFARCTION
     Dates: start: 20111225, end: 20120419
  42. LORAZEPAM [Concomitant]
     Indication: INSOMNIA
     Dates: start: 20120104, end: 20120105
  43. LORAZEPAM [Concomitant]
     Dosage: UNK
     Dates: start: 20120111, end: 20120117
  44. MAGNESIUM OXIDE [Concomitant]
     Indication: CONSTIPATION
     Dosage: UNK
     Dates: start: 20111229, end: 20111231
  45. MAGNESIUM OXIDE [Concomitant]
     Dates: start: 20130121, end: 20130218
  46. MEDICON A [Concomitant]
     Indication: INFLUENZA
     Dates: start: 20130408, end: 20130415
  47. METOCLOPRAMIDE [Concomitant]
     Indication: CONSTIPATION
     Dates: start: 20120108, end: 20120128
  48. METOLAZONE [Concomitant]
     Indication: PLEURAL EFFUSION
     Dates: start: 20111226, end: 20111226
  49. MIDAZOLAM [Concomitant]
     Indication: SEDATION
     Dates: start: 20111226, end: 20111226
  50. MIDAZOLAM [Concomitant]
     Dosage: UNK
     Dates: start: 20111227, end: 20111228
  51. MORPHINE [Concomitant]
     Indication: PLEURAL EFFUSION
     Dates: start: 20111226, end: 20111226
  52. MOSAPRIDE [Concomitant]
     Indication: CONSTIPATION
     Dates: start: 20130121, end: 20130218
  53. NIFLEC [Concomitant]
     Indication: COLONOSCOPY
     Dates: start: 20121220, end: 20121220
  54. OSELTAMIVIR [Concomitant]
     Indication: INFLUENZA
     Dates: start: 20130404, end: 20130409
  55. POTASSIUM CITRATE [Concomitant]
     Indication: METABOLIC ACIDOSIS
     Dates: start: 20111230, end: 20111230
  56. POTASSIUM CHLORIDE [Concomitant]
     Indication: HYPOKALAEMIA
     Dates: start: 20111230, end: 20111230
  57. RHIN [Concomitant]
     Indication: INFLUENZA
     Dates: start: 20130404, end: 20130415
  58. SENNOSIDE [Concomitant]
     Indication: CONSTIPATION
     Dates: start: 20130503, end: 20130520
  59. SENOKOT                                 /UNK/ [Concomitant]
     Indication: CONSTIPATION
     Dates: start: 20111223, end: 20111231
  60. SENOKOT                                 /UNK/ [Concomitant]
     Dates: start: 20120111, end: 20120128
  61. SENOKOT                                 /UNK/ [Concomitant]
     Dates: start: 20120906, end: 20121004
  62. SENOKOT                                 /UNK/ [Concomitant]
     Dates: start: 20121214, end: 20130208
  63. SODIUM PHOSPHATE MONOBASIC [Concomitant]
     Indication: CONSTIPATION
     Dates: start: 20120109, end: 20120109
  64. SPIRONOLACTONE [Concomitant]
     Indication: PLEURAL EFFUSION
     Dates: start: 20111231, end: 20120101
  65. TAMSULOSIN [Concomitant]
     Indication: BENIGN PROSTATIC HYPERPLASIA
     Dates: start: 20121130, end: 20130503
  66. TAMSULOSIN HYDROCHLORIDE [Concomitant]
     Indication: BENIGN PROSTATIC HYPERPLASIA
     Dates: start: 20120118, end: 20120419
  67. UREA [Concomitant]
     Indication: ECZEMA
     Dates: start: 20120615, end: 20120706

REACTIONS (1)
  - Ranula [Unknown]
